FAERS Safety Report 5577325-X (Version None)
Quarter: 2007Q4

REPORT INFORMATION
  Report Type: 
  Country: None (occurrence: None)
  Receive Date: 20071228
  Receipt Date: 20071219
  Transmission Date: 20080405
  Serious: Yes (Life-Threatening, Hospitalization, Other)
  Sender: FDA-Public Use
  Company Number: AU-PFIZER INC-2007093859

PATIENT
  Sex: Female

DRUGS (14)
  1. VFEND [Suspect]
     Indication: ASPERGILLOSIS
     Route: 042
     Dates: start: 20070820, end: 20070821
  2. VFEND [Suspect]
     Route: 042
     Dates: start: 20070822, end: 20070823
  3. ANTIBIOTICS [Concomitant]
  4. ONDANSETRON [Concomitant]
     Route: 048
     Dates: start: 20070820, end: 20070823
  5. TAZOCIN [Concomitant]
     Route: 042
     Dates: start: 20070820, end: 20070823
  6. GENTAMICIN [Concomitant]
     Route: 042
     Dates: start: 20070820, end: 20070823
  7. CEFTRIAXONE [Concomitant]
     Route: 042
     Dates: start: 20070811, end: 20070820
  8. MOXIFLOXACIN HCL [Concomitant]
     Route: 048
     Dates: start: 20070813, end: 20070822
  9. DANAZOL [Concomitant]
     Route: 048
     Dates: start: 20070812, end: 20070823
  10. VENTOLIN [Concomitant]
  11. MAGMIN [Concomitant]
     Route: 048
     Dates: start: 20070812, end: 20070823
  12. BACTRIM DS [Concomitant]
     Route: 048
     Dates: start: 20070812, end: 20070823
  13. VALTREX [Concomitant]
     Route: 048
     Dates: start: 20070821, end: 20070822
  14. MAXOLON [Concomitant]
     Dates: start: 20070814, end: 20070823

REACTIONS (7)
  - ALANINE AMINOTRANSFERASE INCREASED [None]
  - ALTERED STATE OF CONSCIOUSNESS [None]
  - BLOOD CALCIUM DECREASED [None]
  - BLOOD POTASSIUM INCREASED [None]
  - HALLUCINATION, VISUAL [None]
  - HYPONATRAEMIA [None]
  - NIGHTMARE [None]
